FAERS Safety Report 8440983 (Version 2)
Quarter: 2012Q4

REPORT INFORMATION
  Report Type: 
  Country: US (occurrence: US)
  Receive Date: 20120305
  Receipt Date: 20120827
  Transmission Date: 20130627
  Serious: Yes (Other)
  Sender: FDA-Public Use
  Company Number: US-ELI_LILLY_AND_COMPANY-US200910007349

PATIENT
  Age: 27 Year
  Sex: Male

DRUGS (2)
  1. ZYPREXA [Suspect]
     Indication: SCHIZOPHRENIA, PARANOID TYPE
     Dosage: 25 mg, qd
     Dates: start: 19980720
  2. WELLBUTRIN [Concomitant]

REACTIONS (9)
  - Hepatic cirrhosis [Unknown]
  - Hepatitis [Unknown]
  - Type 2 diabetes mellitus [Unknown]
  - Cardiac murmur [Unknown]
  - Neurogenic bladder [Unknown]
  - Dyslipidaemia [Unknown]
  - Blood triglycerides increased [Unknown]
  - Weight increased [Unknown]
  - Prescribed overdose [Unknown]
